FAERS Safety Report 19427744 (Version 1)
Quarter: 2021Q2

REPORT INFORMATION
  Report Type: Spontaneous
  Country: JP (occurrence: JP)
  Receive Date: 20210617
  Receipt Date: 20210617
  Transmission Date: 20210717
  Serious: Yes (Hospitalization, Other)
  Sender: FDA-Public Use
  Company Number: JP-JNJFOC-20210633039

PATIENT
  Sex: Female

DRUGS (2)
  1. TRAMADOL HYDROCHLORIDE. [Suspect]
     Active Substance: TRAMADOL HYDROCHLORIDE
     Indication: PRODUCT USED FOR UNKNOWN INDICATION
     Dosage: 2 DOSAGE FORM, 3/DAY
     Route: 048
     Dates: start: 202102, end: 2021
  2. TRAMADOL HYDROCHLORIDE. [Suspect]
     Active Substance: TRAMADOL HYDROCHLORIDE
     Dosage: 4 DOSAGE FORM, 1/DAY
     Route: 048
     Dates: start: 2021

REACTIONS (3)
  - Peritonitis [Unknown]
  - Seizure [Unknown]
  - Tremor [Unknown]

NARRATIVE: CASE EVENT DATE: 2021
